FAERS Safety Report 12075211 (Version 1)
Quarter: 2016Q1

REPORT INFORMATION
  Report Type: Spontaneous
  Country: US (occurrence: US)
  Receive Date: 20160212
  Receipt Date: 20160212
  Transmission Date: 20160526
  Serious: Yes (Other)
  Sender: FDA-Public Use
  Company Number: US-ELI_LILLY_AND_COMPANY-US201602001802

PATIENT
  Sex: Female

DRUGS (3)
  1. TOUJEO [Suspect]
     Active Substance: INSULIN GLARGINE
     Indication: PRODUCT USED FOR UNKNOWN INDICATION
     Dosage: UNK, UNKNOWN
     Route: 065
  2. HUMALOG [Suspect]
     Active Substance: INSULIN LISPRO
     Dosage: 15 U, UNKNOWN
     Route: 065
  3. HUMALOG [Suspect]
     Active Substance: INSULIN LISPRO
     Indication: PRODUCT USED FOR UNKNOWN INDICATION
     Dosage: 10 U, UNKNOWN
     Route: 065
     Dates: start: 20151203

REACTIONS (11)
  - Blood glucose decreased [Unknown]
  - Loss of consciousness [Unknown]
  - Head titubation [Unknown]
  - Drug ineffective [Unknown]
  - Tremor [Unknown]
  - Somnolence [Unknown]
  - Glycosylated haemoglobin increased [Unknown]
  - Sticky skin [Unknown]
  - Blood glucose increased [Unknown]
  - Pain [Unknown]
  - Hyperhidrosis [Unknown]
